FAERS Safety Report 6589205-1 (Version None)
Quarter: 2010Q1

REPORT INFORMATION
  Report Type: 
  Country: None (occurrence: None)
  Receive Date: 20100218
  Receipt Date: 20100215
  Transmission Date: 20100710
  Serious: Yes (Hospitalization)
  Sender: FDA-Public Use
  Company Number: FR-WYE-G05573410

PATIENT
  Sex: Male
  Weight: 11.5 kg

DRUGS (2)
  1. IBUPROFEN (ADVIL) [Suspect]
     Indication: PYREXIA
     Dosage: 2 INTAKES
     Route: 048
     Dates: start: 20091224
  2. PARACETAMOL [Concomitant]
     Indication: RHINITIS

REACTIONS (5)
  - CONDITION AGGRAVATED [None]
  - EAR INFECTION [None]
  - PNEUMOCOCCAL SEPSIS [None]
  - PNEUMONIA PNEUMOCOCCAL [None]
  - PURPURA [None]
